FAERS Safety Report 7804243-6 (Version None)
Quarter: 2011Q4

REPORT INFORMATION
  Report Type: 
  Country: None (occurrence: None)
  Receive Date: 20111010
  Receipt Date: 20110929
  Transmission Date: 20120403
  Serious: Yes (Death, Other)
  Sender: FDA-Public Use
  Company Number: PHHY2011US88366

PATIENT
  Age: 50 Year
  Sex: Male

DRUGS (3)
  1. SANDOSTATIN LAR [Suspect]
     Dosage: 30 MG, EVERY MONTH
  2. CAPECITABINE [Concomitant]
     Dosage: 1000 MG, TWICE DAILY 28 DAYS CYCLES
  3. TEMOZOLOMIDE [Concomitant]
     Dosage: UNK UKN, 100-200 MG/M2/DAY BID

REACTIONS (5)
  - NEOPLASM PROGRESSION [None]
  - CRANIAL NERVE DISORDER [None]
  - METASTASES TO BONE [None]
  - BACK PAIN [None]
  - DEATH [None]
